FAERS Safety Report 6021901-7 (Version None)
Quarter: 2008Q4

REPORT INFORMATION
  Report Type: 
  Country: None (occurrence: None)
  Receive Date: 20081222
  Receipt Date: 20081103
  Transmission Date: 20090506
  Serious: No
  Sender: FDA-Public Use
  Company Number: ALL1 1-2008-03058

PATIENT
  Age: 46 Year
  Sex: Female
  Weight: 52.2 kg

DRUGS (3)
  1. VYVANSE [Suspect]
     Indication: ATTENTION DEFICIT/HYPERACTIVITY DISORDER
     Dosage: 50 MG, ORAL
     Route: 048
     Dates: start: 20080801, end: 20080901
  2. ALPRAZOLAM [Concomitant]
  3. NORTRIPTYLINE HCL [Concomitant]

REACTIONS (1)
  - DRUG INEFFECTIVE [None]
